FAERS Safety Report 10549059 (Version 3)
Quarter: 2015Q1

REPORT INFORMATION
  Report Type: Spontaneous
  Country: US (occurrence: US)
  Receive Date: 20141028
  Receipt Date: 20150323
  Transmission Date: 20150720
  Serious: Yes (Other)
  Sender: FDA-Public Use
  Company Number: US-BAYER-2014-157143

PATIENT
  Age: 27 Year
  Sex: Female

DRUGS (2)
  1. MIRENA [Suspect]
     Active Substance: LEVONORGESTREL
     Indication: CONTRACEPTION
     Dosage: 20 MCG/24HR, CONT
     Route: 015
     Dates: start: 20090312, end: 20140527
  2. SEASONALE [Concomitant]
     Active Substance: ETHINYL ESTRADIOL\LEVONORGESTREL

REACTIONS (10)
  - Pregnancy with contraceptive device [None]
  - Drug ineffective [None]
  - Post procedural discomfort [None]
  - Injury [None]
  - Infection [None]
  - Uterine perforation [None]
  - Scar [None]
  - Medical device pain [None]
  - Pain [None]
  - Device issue [None]

NARRATIVE: CASE EVENT DATE: 20090312
